FAERS Safety Report 8834820 (Version 1)
Quarter: 2012Q4

REPORT INFORMATION
  Report Type: Spontaneous
  Country: PL (occurrence: None)
  Receive Date: 20121009
  Receipt Date: 20121009
  Transmission Date: 20130627
  Serious: Yes (Death)
  Sender: FDA-Public Use
  Company Number: MPS1-1000791

PATIENT
  Age: 2 Year
  Sex: Female
  Weight: 10.5 kg

DRUGS (11)
  1. ALDURAZYME [Suspect]
     Indication: MUCOPOLYSACCHARIDOSIS I
     Dosage: 1 vials, qw, intravenous
     Route: 042
     Dates: start: 20120817, end: 20120917
  2. ALDURAZYME [Suspect]
     Indication: MUCOPOLYSACCHARIDOSIS I
     Route: 042
     Dates: end: 20120917
  3. COD LIVER OIL (COD LIVER OIL) [Concomitant]
  4. VITAMIN D3 (COLECALCIFEROL) [Concomitant]
  5. SPIRONOL (SPIRONOLACTONE) [Concomitant]
  6. ENAP (ENALAPRIL) [Concomitant]
  7. FUROSEMID (FUROSEMIDE) [Concomitant]
  8. IMMUNOGLOBULIN (IMMUNOBLOBULIN) [Concomitant]
  9. CALCIUM (CALCIUM) [Concomitant]
  10. DOBUTREX (DOBUTAMINE HYDROCHLORIDE) [Concomitant]
  11. HYDROCORTISONE (HYDROCORTISONE) [Concomitant]

REACTIONS (4)
  - Cardiopulmonary failure [None]
  - Drug hypersensitivity [None]
  - Cardiac arrest [None]
  - Cardiac failure congestive [None]
